FAERS Safety Report 13106535 (Version 8)
Quarter: 2017Q2

REPORT INFORMATION
  Report Type: Report from Study
  Country: CO (occurrence: CO)
  Receive Date: 20170111
  Receipt Date: 20170406
  Transmission Date: 20170830
  Serious: Yes (Death, Hospitalization, Other)
  Sender: FDA-Public Use
  Company Number: CO-REGENERON PHARMACEUTICALS, INC.-2017-10108

PATIENT

DRUGS (1)
  1. EYLEA [Suspect]
     Active Substance: AFLIBERCEPT
     Indication: RETINAL VEIN OCCLUSION
     Dosage: 1 DF, Q1MON
     Route: 031
     Dates: start: 20160515, end: 20161027

REACTIONS (6)
  - Spinal fracture [Not Recovered/Not Resolved]
  - Photophobia [Recovering/Resolving]
  - Eye pain [Not Recovered/Not Resolved]
  - Synovial cyst removal [Recovering/Resolving]
  - Deep vein thrombosis [Fatal]
  - Deep vein thrombosis postoperative [Recovering/Resolving]

NARRATIVE: CASE EVENT DATE: 20160710
